FAERS Safety Report 5492840-5 (Version None)
Quarter: 2007Q4

REPORT INFORMATION
  Report Type: 
  Country: None (occurrence: None)
  Receive Date: 20071023
  Receipt Date: 20060928
  Transmission Date: 20080405
  Serious: No
  Sender: FDA-Public Use
  Company Number: US-BRISTOL-MYERS SQUIBB COMPANY-13524715

PATIENT
  Age: 40 Year
  Sex: Male
  Weight: 93 kg

DRUGS (3)
  1. BUSPAR [Suspect]
     Indication: ANXIETY
     Dosage: TAKING 20-30 MG OF BUSPAR DAILY FOR ANXIETY IN MARCH 2006.  ON 09/19/2006, INCREASED DOSE TO 60 MG.
     Dates: start: 20060301, end: 20060919
  2. LEXAPRO [Concomitant]
  3. DOXYCYCLINE [Concomitant]

REACTIONS (3)
  - HEPATIC ENZYME INCREASED [None]
  - HEPATIC STEATOSIS [None]
  - HYPERHIDROSIS [None]
